FAERS Safety Report 5798561-3 (Version None)
Quarter: 2008Q2

REPORT INFORMATION
  Report Type: 
  Country: None (occurrence: None)
  Receive Date: 20080601
  Receipt Date: 20080120
  Transmission Date: 20081010
  Serious: No
  Sender: FDA-Public Use
  Company Number: US200801004314

PATIENT
  Age: 67 Year
  Sex: Female

DRUGS (11)
  1. BYETTA [Suspect]
     Indication: INSULIN-REQUIRING TYPE 2 DIABETES MELLITUS
     Dosage: 5 UG, 2/D, SUBCUTANEOUS ; 10 UG, 2/D, SUBCUTANEOUS
     Route: 058
     Dates: start: 20071201, end: 20080114
  2. BYETTA [Suspect]
     Indication: INSULIN-REQUIRING TYPE 2 DIABETES MELLITUS
     Dosage: 5 UG, 2/D, SUBCUTANEOUS ; 10 UG, 2/D, SUBCUTANEOUS
     Route: 058
     Dates: start: 20080114
  3. HUMULIN 30/70 (INSULIN HUMAN INJECTION, ISOPHANE) [Concomitant]
  4. DRUG USED IN DIABETES [Concomitant]
  5. LEXAPRO [Concomitant]
  6. LIPITOR [Concomitant]
  7. DIOVAN [Concomitant]
  8. ATENOLOL [Concomitant]
  9. TORSEMIDE (TORSEMIDE) [Concomitant]
  10. POTASSIUM (POTASSIUM) [Concomitant]
  11. WARFARIN SODIUM [Concomitant]

REACTIONS (4)
  - ASTHENIA [None]
  - BLOOD GLUCOSE DECREASED [None]
  - FEELING JITTERY [None]
  - NAUSEA [None]
